FAERS Safety Report 10363335 (Version 1)
Quarter: 2014Q1

REPORT INFORMATION
  Report Type: Spontaneous
  Country: US (occurrence: None)
  Receive Date: 20140306
  Receipt Date: 20140306
  Transmission Date: 20141002
  Serious: Yes (Disabling)
  Sender: FDA-Public Use
  Company Number: 163-21880-13020112

PATIENT
  Age: 78 Year
  Sex: Female

DRUGS (1)
  1. REVLIMID (LENALIDOMIDE)(25 MILLIGRAM, CAPSULES) [Suspect]
     Indication: LYMPHOMA
     Route: 048
     Dates: start: 20121017, end: 20130130

REACTIONS (2)
  - Non-Hodgkin^s lymphoma [None]
  - Disease progression [None]
